FAERS Safety Report 15630720 (Version 1)
Quarter: 2018Q4

REPORT INFORMATION
  Report Type: Spontaneous
  Country: FR (occurrence: FR)
  Receive Date: 20181119
  Receipt Date: 20181119
  Transmission Date: 20190205
  Serious: Yes (Hospitalization)
  Sender: FDA-Public Use
  Company Number: FR-TEVA-2018-FR-976060

PATIENT
  Age: 85 Year
  Sex: Male
  Weight: 84 kg

DRUGS (8)
  1. AMAREL 1 MG, COMPRIM? (GLIMEPIRIDE) [Suspect]
     Active Substance: GLIMEPIRIDE
     Indication: TYPE 2 DIABETES MELLITUS
     Dosage: 1 DOSAGE FORMS DAILY;
     Route: 048
     Dates: end: 20170126
  2. LASILIX 40 MG, COMPRIM? S?CABLE [Suspect]
     Active Substance: FUROSEMIDE
     Indication: HYPERTENSION
     Dosage: 3 DOSAGE FORMS DAILY; SCORED
     Route: 048
     Dates: end: 20170126
  3. SIMVASTATINE [Concomitant]
     Active Substance: SIMVASTATIN
  4. PERMIXON 160 MG, G?LULE [Concomitant]
     Active Substance: HERBALS\SAW PALMETTO
     Route: 065
  5. ALLOPURINOL. [Suspect]
     Active Substance: ALLOPURINOL
     Indication: PRODUCT USED FOR UNKNOWN INDICATION
     Dosage: 300 MILLIGRAM DAILY;
     Route: 048
     Dates: end: 20170126
  6. TRIATEC 5 MG, G?LULE [Suspect]
     Active Substance: RAMIPRIL
     Indication: HYPERTENSION
     Dosage: 1 DOSAGE FORMS DAILY;
     Route: 048
     Dates: end: 20170126
  7. PREVISCAN [Concomitant]
  8. BISOPROLOL (HEMIFUMARATE DE) [Concomitant]
     Active Substance: BISOPROLOL FUMARATE

REACTIONS (1)
  - Acute kidney injury [Recovered/Resolved]

NARRATIVE: CASE EVENT DATE: 20170126
